FAERS Safety Report 16754240 (Version 6)
Quarter: 2019Q4

REPORT INFORMATION
  Report Type: Report from Study
  Country: US (occurrence: US)
  Receive Date: 20190829
  Receipt Date: 20191008
  Transmission Date: 20200122
  Serious: Yes (Hospitalization)
  Sender: FDA-Public Use
  Company Number: US-ROCHE-2392963

PATIENT
  Age: 67 Year
  Sex: Male
  Weight: 75.2 kg

DRUGS (23)
  1. VINCRISTINE [Suspect]
     Active Substance: VINCRISTINE
     Indication: DIFFUSE LARGE B-CELL LYMPHOMA
     Dosage: DATE AND MOST RECENT DOSE OF VINCRISTINE PRIOR TO ONSET OF SAE: 19/AUG/2019, 2 MG??VINCRISTINE 1MG/1
     Route: 042
     Dates: start: 20190619
  2. RITUXIMAB. [Suspect]
     Active Substance: RITUXIMAB
     Indication: DIFFUSE LARGE B-CELL LYMPHOMA
     Dosage: 375 MILLIGRAMS PER SQUARE METER (MG/M^2) IV, ?DATE AND MOST RECENT DOSE OF RITUXIMAB PRIOR TO ONSET
     Route: 041
     Dates: start: 20190619
  3. PLACEBO [Suspect]
     Active Substance: UNSPECIFIED INGREDIENT
     Indication: DIFFUSE LARGE B-CELL LYMPHOMA
     Dosage: DATE AND MOST RECENT DOSE PRIOR TO ONSET OF SAE: 19/AUG/2019, 141 MG
     Route: 042
     Dates: start: 20190620
  4. VINCRISTINE [Suspect]
     Active Substance: VINCRISTINE
     Route: 042
  5. PEGFILGRASTIM [Concomitant]
     Active Substance: PEGFILGRASTIM
     Route: 058
     Dates: start: 20190730, end: 20190730
  6. PLANTAGO SPP. [Concomitant]
     Indication: HYPONATRAEMIA
     Route: 048
     Dates: start: 20190910, end: 20190915
  7. CHOLESTYRAMINE. [Concomitant]
     Active Substance: CHOLESTYRAMINE
     Indication: HYPONATRAEMIA
     Route: 048
     Dates: start: 20190909, end: 20190915
  8. VINCRISTINE [Suspect]
     Active Substance: VINCRISTINE
     Route: 042
  9. ACETAMINOPHEN. [Concomitant]
     Active Substance: ACETAMINOPHEN
     Indication: PAIN
     Route: 048
  10. OMEGA 3 [DOCOSAHEXAENOIC ACID;EICOSAPENTAENOIC ACID] [Concomitant]
     Route: 048
  11. ACYCLOVIR [ACICLOVIR] [Concomitant]
     Active Substance: ACYCLOVIR
     Route: 048
     Dates: start: 20190905, end: 20190915
  12. LOPERAMIDE [Concomitant]
     Active Substance: LOPERAMIDE
     Indication: HYPONATRAEMIA
     Route: 048
     Dates: start: 20190907, end: 20190915
  13. PREDNISONE. [Suspect]
     Active Substance: PREDNISONE
     Indication: DIFFUSE LARGE B-CELL LYMPHOMA
     Dosage: 100 MILLIGRAMS PER DAY (MG/DAY) ORALLY (PO) ON DAYS 1-5 OF EVERY 21-DAY CYCLE FOR 6 CYCLES. ?DATE AN
     Route: 048
     Dates: start: 20190619
  14. ONDANSETRON [Concomitant]
     Active Substance: ONDANSETRON
     Indication: PROPHYLAXIS OF NAUSEA AND VOMITING
     Route: 048
     Dates: start: 20190611
  15. FAMOTIDINE. [Concomitant]
     Active Substance: FAMOTIDINE
     Indication: ABDOMINAL DISTENSION
     Route: 048
  16. LOPERAMIDE [Concomitant]
     Active Substance: LOPERAMIDE
     Indication: HYPOKALAEMIA
     Route: 048
     Dates: start: 20190908, end: 20190915
  17. CYCLOPHOSPHAMIDE. [Suspect]
     Active Substance: CYCLOPHOSPHAMIDE
     Indication: DIFFUSE LARGE B-CELL LYMPHOMA
     Dosage: 750 MG/M^2 IV,?DATE AND MOST RECENT DOSE OF CYCLOPHOSPHAMIDE PRIOR TO ONSET OF SAE: 19/AUG/2019, 151
     Route: 042
     Dates: start: 20190619
  18. ALLOPURINOL. [Concomitant]
     Active Substance: ALLOPURINOL
     Indication: PROPHYLAXIS
     Route: 048
     Dates: start: 20190611
  19. PROCHLORPERAZINE. [Concomitant]
     Active Substance: PROCHLORPERAZINE
     Indication: PROPHYLAXIS OF NAUSEA AND VOMITING
     Route: 048
     Dates: start: 20190611
  20. HYDROCORTISONE. [Concomitant]
     Active Substance: HYDROCORTISONE
     Indication: PRURITUS
     Route: 061
     Dates: start: 20190823
  21. SIMETHICONE (DIMETHICONE) [Concomitant]
     Active Substance: DIMETHICONE
     Indication: ABDOMINAL DISTENSION
     Route: 048
  22. DOXORUBICIN [Suspect]
     Active Substance: DOXORUBICIN
     Indication: DIFFUSE LARGE B-CELL LYMPHOMA
     Dosage: 50 MG/M^2 IV ON DAY 1 ?DATE AND MOST RECENT DOSE OF DOXORUBICIN PRIOR TO ONSET OF SAE: 19/AUG/2019,
     Route: 042
     Dates: start: 20190619
  23. FLORASTOR [SACCHAROMYCES BOULARDII] [Concomitant]
     Indication: HYPONATRAEMIA
     Route: 048
     Dates: start: 20190910, end: 20190915

REACTIONS (3)
  - Abdominal infection [Recovered/Resolved]
  - Small intestinal perforation [Not Recovered/Not Resolved]
  - Small intestinal obstruction [Not Recovered/Not Resolved]

NARRATIVE: CASE EVENT DATE: 20190823
